FAERS Safety Report 13833028 (Version 4)
Quarter: 2017Q4

REPORT INFORMATION
  Report Type: Spontaneous
  Country: US (occurrence: US)
  Receive Date: 20170803
  Receipt Date: 20171129
  Transmission Date: 20180320
  Serious: Yes (Hospitalization, Other)
  Sender: FDA-Public Use
  Company Number: US-PFIZER INC-2017336494

PATIENT
  Age: 78 Year
  Sex: Female
  Weight: 64.4 kg

DRUGS (11)
  1. PANTOPRAZOLE [Concomitant]
     Active Substance: PANTOPRAZOLE
     Indication: ABDOMINAL DISCOMFORT
  2. IBRANCE [Suspect]
     Active Substance: PALBOCICLIB
     Indication: BREAST CANCER METASTATIC
     Dosage: 100 MG, FOR 21 DAYS
     Route: 048
     Dates: start: 2016
  3. FULVESTRANT. [Concomitant]
     Active Substance: FULVESTRANT
     Dosage: 25 MG, UNK (ONCE A MONTH )
     Route: 030
  4. FENTANYL. [Concomitant]
     Active Substance: FENTANYL
     Dosage: 2 DF, UNK (MAYBE A WEEK OR LESS)
  5. GABAPENTIN. [Concomitant]
     Active Substance: GABAPENTIN
     Indication: BURNING SENSATION
     Dosage: 300 MG, 2X/DAY (IN THE EVENING)
     Route: 048
  6. LETROZOLE. [Concomitant]
     Active Substance: LETROZOLE
     Dosage: 25 MG, 1X/DAY
     Route: 048
     Dates: end: 20171111
  7. HYDROCODONE [Concomitant]
     Active Substance: HYDROCODONE
     Indication: BURNING SENSATION
  8. IBRANCE [Suspect]
     Active Substance: PALBOCICLIB
     Dosage: 100 MG, CYCLIC (21 DAYS THEN 7 DAYS OFF)
     Route: 048
     Dates: start: 2015, end: 20171111
  9. HYDROCODONE [Concomitant]
     Active Substance: HYDROCODONE
     Indication: PAIN
     Dosage: 1 DF, UNK (10/325, 4-5 TIMES A DAY)
     Route: 048
  10. PANTOPRAZOLE [Concomitant]
     Active Substance: PANTOPRAZOLE
     Indication: ERUCTATION
     Dosage: 40 MG, 1X/DAY (TOOK 2 OR 3.)
     Route: 048
     Dates: start: 20171112, end: 20171113
  11. GABAPENTIN. [Concomitant]
     Active Substance: GABAPENTIN
     Indication: NEURALGIA

REACTIONS (8)
  - Weight increased [Recovered/Resolved]
  - Weight decreased [Unknown]
  - Fluid retention [Recovering/Resolving]
  - Pulmonary oedema [Recovering/Resolving]
  - Localised infection [Recovering/Resolving]
  - Neoplasm progression [Not Recovered/Not Resolved]
  - Gait disturbance [Unknown]
  - Abdominal distension [Unknown]

NARRATIVE: CASE EVENT DATE: 2017
